FAERS Safety Report 6915316-4 (Version None)
Quarter: 2010Q3

REPORT INFORMATION
  Report Type: 
  Country: None (occurrence: None)
  Receive Date: 20100806
  Receipt Date: 20100806
  Transmission Date: 20110219
  Serious: Yes (Hospitalization)
  Sender: FDA-Public Use
  Company Number: None

PATIENT
  Age: 56 Year
  Sex: Female
  Weight: 68.9467 kg

DRUGS (15)
  1. ADRIAMYCIN PFS [Suspect]
     Indication: NON-HODGKIN'S LYMPHOMA
     Dosage: DRUGS GIVEN EVERY 2 WEEK
     Route: 042
     Dates: start: 20100727
  2. VINCRISTINE [Suspect]
     Indication: NON-HODGKIN'S LYMPHOMA
     Dosage: DRUGS GIVEN EVERY 2 WEEK
     Route: 042
     Dates: start: 20100727
  3. CYTOXAN [Suspect]
  4. RITUXAN [Suspect]
  5. PREDNISONE [Suspect]
  6. LEUKINE [Suspect]
     Dosage: 427MG DAYS 3-13
     Route: 058
     Dates: start: 20100729
  7. OMEPRAZOLE [Concomitant]
  8. COLACE [Concomitant]
  9. ACETAMINOPHEN [Concomitant]
  10. VICODIN [Concomitant]
  11. SIMETHICONE [Concomitant]
  12. MOM [Concomitant]
  13. PEPCID [Concomitant]
  14. BENADRYL [Concomitant]
  15. HYDORCORTISONE [Concomitant]

REACTIONS (2)
  - ABDOMINAL PAIN [None]
  - FAECES DISCOLOURED [None]
